FAERS Safety Report 13227387 (Version 1)
Quarter: 2017Q1

REPORT INFORMATION
  Report Type: Spontaneous
  Country: US (occurrence: US)
  Receive Date: 20170213
  Receipt Date: 20170213
  Transmission Date: 20170428
  Serious: Yes (Other)
  Sender: FDA-Public Use
  Company Number: US-JNJFOC-20170210551

PATIENT
  Sex: Male

DRUGS (11)
  1. ASPRIN [Concomitant]
     Active Substance: ASPIRIN
  2. ALLOPURINOL. [Concomitant]
     Active Substance: ALLOPURINOL
  3. CLOPIDOGREL [Concomitant]
     Active Substance: CLOPIDOGREL BISULFATE
  4. ISOSORBIDE MONONITRATE. [Concomitant]
     Active Substance: ISOSORBIDE MONONITRATE
  5. NITROSTAT [Concomitant]
     Active Substance: NITROGLYCERIN
  6. VITAMIN D [Concomitant]
     Active Substance: CHOLECALCIFEROL
  7. METOPROLOL SUCCINATE. [Concomitant]
     Active Substance: METOPROLOL SUCCINATE
  8. BIFIDOBACTERIUM LACTIS [Concomitant]
  9. FISH OIL W/TOCOPHEROL [Concomitant]
  10. IMBRUVICA [Suspect]
     Active Substance: IBRUTINIB
     Indication: CHRONIC LYMPHOCYTIC LEUKAEMIA
     Route: 048
     Dates: start: 20141216
  11. ATORVASTATIN [Concomitant]
     Active Substance: ATORVASTATIN

REACTIONS (1)
  - Surgery [Unknown]
